FAERS Safety Report 16276488 (Version 2)
Quarter: 2019Q2

REPORT INFORMATION
  Report Type: Spontaneous
  Country: GB (occurrence: GB)
  Receive Date: 20190505
  Receipt Date: 20190516
  Transmission Date: 20190711
  Serious: Yes (Other)
  Sender: FDA-Public Use
  Company Number: GB-009507513-1905GBR001070

PATIENT

DRUGS (2)
  1. RIBAVIRIN. [Suspect]
     Active Substance: RIBAVIRIN
     Indication: RESPIRATORY SYNCYTIAL VIRUS INFECTION
     Dosage: 15?20 MG/KG DIVIDED INTO THREE DAILY DOSES, ROUNDED TO THE NEAREST 200 MG
     Route: 048
  2. GLOBULIN, IMMUNE [Concomitant]
     Active Substance: HUMAN IMMUNOGLOBULIN G
     Indication: RESPIRATORY SYNCYTIAL VIRUS INFECTION
     Dosage: TOTAL DOSE OF 2 G/KG IN SPLIT DOSES OVER 2-4 DAYS
     Route: 042

REACTIONS (3)
  - Acute kidney injury [Recovered/Resolved]
  - Off label use [Unknown]
  - Haemolysis [Unknown]
